FAERS Safety Report 5556073-6 (Version None)
Quarter: 2007Q4

REPORT INFORMATION
  Report Type: 
  Country: None (occurrence: None)
  Receive Date: 20071213
  Receipt Date: 20071203
  Transmission Date: 20080405
  Serious: No
  Sender: FDA-Public Use
  Company Number: US-BAXTER-2007BH007693

PATIENT
  Age: 26 Year
  Sex: Male
  Weight: 90 kg

DRUGS (7)
  1. GAMMAGARD LIQUID [Suspect]
     Indication: MENINGITIS
     Route: 042
     Dates: start: 20070623, end: 20070627
  2. GAMMAGARD LIQUID [Suspect]
     Indication: GUILLAIN-BARRE SYNDROME
     Route: 042
     Dates: start: 20070623, end: 20070627
  3. GAMMAGARD LIQUID [Suspect]
     Route: 042
     Dates: start: 20070623, end: 20070627
  4. GAMMAGARD LIQUID [Suspect]
     Route: 042
     Dates: start: 20070623, end: 20070627
  5. GAMMAGARD LIQUID [Suspect]
     Route: 042
     Dates: start: 20070623, end: 20070627
  6. GAMMAGARD LIQUID [Suspect]
     Route: 042
     Dates: start: 20070623, end: 20070627
  7. VALGANCICLOVIR HCL [Concomitant]
     Indication: PROPHYLAXIS
     Route: 048

REACTIONS (3)
  - HEADACHE [None]
  - HERPES SIMPLEX DNA TEST POSITIVE [None]
  - PYREXIA [None]
